FAERS Safety Report 19699877 (Version 4)
Quarter: 2021Q3

REPORT INFORMATION
  Report Type: Spontaneous
  Country: VN (occurrence: VN)
  Receive Date: 20210813
  Receipt Date: 20210906
  Transmission Date: 20211014
  Serious: Yes (Death, Other)
  Sender: FDA-Public Use
  Company Number: VN-SA-2021SA268110

PATIENT
  Sex: Female

DRUGS (6)
  1. MIDAZOLAM. [Concomitant]
     Active Substance: MIDAZOLAM
     Dosage: UNK
     Route: 042
     Dates: start: 20200624, end: 20200926
  2. CLAFORAN [Concomitant]
     Active Substance: CEFOTAXIME SODIUM
     Dosage: 100 MG/KG, QD
     Dates: start: 20200924, end: 20200926
  3. MYOZYME [Suspect]
     Active Substance: ALGLUCOSIDASE ALFA
     Indication: GLYCOGEN STORAGE DISEASE TYPE II
     Dosage: 20 MG/KG
     Route: 041
     Dates: start: 20200730, end: 20200917
  4. DOBUTAMIN [Concomitant]
     Active Substance: DOBUTAMINE HYDROCHLORIDE
     Dosage: 10 UG/KG
     Route: 042
     Dates: start: 20200924, end: 20200926
  5. ADRENALINE [EPINEPHRINE] [Concomitant]
     Active Substance: EPINEPHRINE
     Route: 042
     Dates: start: 20200926, end: 20200926
  6. CALCII CHLORID [Concomitant]
     Dosage: UNK
     Route: 042
     Dates: start: 20200926, end: 20200926

REACTIONS (1)
  - Pneumonia [Fatal]

NARRATIVE: CASE EVENT DATE: 2020
